FAERS Safety Report 5714283-9 (Version None)
Quarter: 2008Q2

REPORT INFORMATION
  Report Type: 
  Country: None (occurrence: None)
  Receive Date: 20080421
  Receipt Date: 20080408
  Transmission Date: 20081010
  Serious: Yes (Other)
  Sender: FDA-Public Use
  Company Number: 8031754

PATIENT
  Age: 27 Year
  Sex: Male
  Weight: 70 kg

DRUGS (2)
  1. KEPPRA [Suspect]
     Indication: EPILEPSY
     Dosage: 500 MG 3/D PO
     Route: 048
     Dates: start: 20070719
  2. DEPAKINE CHRONO /01294701/ [Suspect]
     Dosage: 500 MG 3/D PO
     Route: 048

REACTIONS (3)
  - INFERTILITY [None]
  - SPERMATOZOA MORPHOLOGY ABNORMAL [None]
  - SPERMATOZOA PROGRESSIVE MOTILITY ABNORMAL [None]
